FAERS Safety Report 24591005 (Version 2)
Quarter: 2025Q3

REPORT INFORMATION
  Report Type: Report from Study
  Country: US (occurrence: US)
  Receive Date: 20241107
  Receipt Date: 20250802
  Transmission Date: 20251021
  Serious: Yes (Other)
  Sender: ALEXION PHARMACEUTICALS
  Company Number: US-AstraZeneca-CH-00728871A

PATIENT
  Sex: Female

DRUGS (1)
  1. ACALABRUTINIB [Suspect]
     Active Substance: ACALABRUTINIB

REACTIONS (6)
  - Depression [Unknown]
  - Hypoacusis [Unknown]
  - Anxiety [Unknown]
  - Throat cancer [Unknown]
  - Lymphoma [Unknown]
  - Leukaemia [Unknown]
